FAERS Safety Report 5274449-1 (Version None)
Quarter: 2007Q1

REPORT INFORMATION
  Report Type: 
  Country: None (occurrence: None)
  Receive Date: 20070323
  Receipt Date: 20070312
  Transmission Date: 20070707
  Serious: Yes (Death, Other)
  Sender: FDA-Public Use
  Company Number: US-PFIZER INC-2007019349

PATIENT
  Sex: Male
  Weight: 68 kg

DRUGS (1)
  1. BEXTRA [Suspect]
     Indication: SPINAL COLUMN STENOSIS
     Dates: start: 20040727, end: 20041106

REACTIONS (2)
  - MYOCARDIAL INFARCTION [None]
  - SUDDEN DEATH [None]
